FAERS Safety Report 6995866-5 (Version None)
Quarter: 2010Q3

REPORT INFORMATION
  Report Type: 
  Country: None (occurrence: None)
  Receive Date: 20100918
  Receipt Date: 20081029
  Transmission Date: 20110219
  Serious: Yes (Other)
  Sender: FDA-Public Use
  Company Number: US-WYE-H06607708

PATIENT
  Sex: Female
  Weight: 90.8 kg

DRUGS (3)
  1. EFFEXOR XR [Suspect]
     Indication: ANXIETY
     Route: 048
     Dates: start: 20050101
  2. EFFEXOR XR [Suspect]
     Dosage: ^TRYING TO WEAN OFF^
     Route: 048
  3. EFFEXOR XR [Suspect]
     Route: 048

REACTIONS (4)
  - BLOOD PRESSURE INCREASED [None]
  - DRUG WITHDRAWAL SYNDROME [None]
  - VERTIGO [None]
  - WEIGHT INCREASED [None]
